FAERS Safety Report 8276521-0 (Version None)
Quarter: 2012Q2

REPORT INFORMATION
  Report Type: 
  Country: None (occurrence: None)
  Receive Date: 20120412
  Receipt Date: 20120130
  Transmission Date: 20120825
  Serious: No
  Sender: FDA-Public Use
  Company Number: US-GLAXOSMITHKLINE-A0963749A

PATIENT
  Age: 61 Year
  Sex: Male

DRUGS (2)
  1. JALYN [Suspect]
     Indication: POLLAKIURIA
     Dosage: 1CAP PER DAY
     Route: 048
     Dates: start: 20110501, end: 20120107
  2. ACIPHEX [Concomitant]

REACTIONS (8)
  - EJACULATION DISORDER [None]
  - PRURITUS [None]
  - DYSPEPSIA [None]
  - LACRIMATION INCREASED [None]
  - EYE PAIN [None]
  - ERECTILE DYSFUNCTION [None]
  - DIZZINESS [None]
  - ERUCTATION [None]
